FAERS Safety Report 10347935 (Version 6)
Quarter: 2014Q3

REPORT INFORMATION
  Report Type: Spontaneous
  Country: US (occurrence: None)
  Receive Date: 20140725
  Receipt Date: 20140902
  Transmission Date: 20150326
  Serious: Yes (Hospitalization)
  Sender: FDA-Public Use
  Company Number: UNT-2014-003863

PATIENT
  Age: 30 Year
  Sex: Female
  Weight: 61.2 kg

DRUGS (4)
  1. REMODULIN [Suspect]
     Active Substance: TREPROSTINIL
     Indication: PULMONARY ARTERIAL HYPERTENSION
     Dosage: 0.012 UG/KG, CONTINUING, SUBCUTANEOUS
     Route: 058
     Dates: start: 20140710
  2. ADCIRCA (TADALAFIL) UNKNOWN [Concomitant]
  3. TYVASO [Suspect]
     Active Substance: TREPROSTINIL
     Indication: PRODUCT USED FOR UNKNOWN INDICATION
     Route: 055
     Dates: start: 20140630
  4. LETAIRIS [Suspect]
     Active Substance: AMBRISENTAN
     Indication: PRODUCT USED FOR UNKNOWN INDICATION
     Dates: start: 20140611

REACTIONS (5)
  - Syncope [None]
  - Loss of consciousness [None]
  - Dehydration [None]
  - Infusion site oedema [None]
  - Infusion site pain [None]

NARRATIVE: CASE EVENT DATE: 2014
